FAERS Safety Report 24031106 (Version 1)
Quarter: 2024Q2

REPORT INFORMATION
  Report Type: Other
  Country: US (occurrence: US)
  Receive Date: 20240628
  Receipt Date: 20240628
  Transmission Date: 20240715
  Serious: Yes (Hospitalization, Other)
  Sender: FDA-Public Use
  Company Number: US-Marksans Pharma Limited-2158680

PATIENT
  Age: 55 Year
  Sex: Female

DRUGS (5)
  1. FAMOTIDINE [Suspect]
     Active Substance: FAMOTIDINE
     Indication: Nausea
     Route: 048
  2. FAMOTIDINE [Suspect]
     Active Substance: FAMOTIDINE
     Indication: Decreased appetite
  3. FAMOTIDINE [Suspect]
     Active Substance: FAMOTIDINE
     Indication: Diarrhoea
  4. FAMOTIDINE [Suspect]
     Active Substance: FAMOTIDINE
     Indication: Abdominal pain
  5. DIETARY SUPPLEMENT\HERBALS [Suspect]
     Active Substance: DIETARY SUPPLEMENT\HERBALS
     Route: 048

REACTIONS (3)
  - Liver injury [Recovered/Resolved]
  - Therapy partial responder [Unknown]
  - Drug interaction [Unknown]
